FAERS Safety Report 18482029 (Version 1)
Quarter: 2020Q4

REPORT INFORMATION
  Report Type: Spontaneous
  Country: US (occurrence: US)
  Receive Date: 20201109
  Receipt Date: 20201109
  Transmission Date: 20210114
  Serious: Yes (Other)
  Sender: FDA-Public Use
  Company Number: US-OTSUKA-2020_025183

PATIENT
  Sex: Female

DRUGS (1)
  1. INQOVI [Suspect]
     Active Substance: CEDAZURIDINE\DECITABINE
     Indication: MYELODYSPLASTIC SYNDROME
     Dosage: 135 MG, (35 MG DECITABINE AND 100 MG CEDAZURIDINE), DAILY DAYS 1-5 IN EACH CYCLE (CYCLE 1)
     Route: 065
     Dates: start: 20200914

REACTIONS (4)
  - Respiratory tract oedema [Unknown]
  - Cough [Not Recovered/Not Resolved]
  - Pneumonia [Unknown]
  - Dyspnoea [Not Recovered/Not Resolved]
